FAERS Safety Report 17163729 (Version 1)
Quarter: 2019Q4

REPORT INFORMATION
  Report Type: Spontaneous
  Country: US (occurrence: US)
  Receive Date: 20191125
  Receipt Date: 20191125
  Transmission Date: 20200122
  Serious: Yes (Disabling)
  Sender: FDA-Public Use
  Company Number: None

PATIENT
  Age: 44 Year
  Sex: Female
  Weight: 66.22 kg

DRUGS (12)
  1. EVOXAC (CEVERELINUNE) [Concomitant]
  2. FERROUS SULFATE. [Concomitant]
     Active Substance: FERROUS SULFATE
  3. OTC ALLERGY PILLS [Concomitant]
  4. LEVOFLOXACIN. [Suspect]
     Active Substance: LEVOFLOXACIN
     Indication: TONSILLAR CYST
     Dosage: ?          QUANTITY:400 MG MILLIGRAM(S);?
     Route: 048
     Dates: start: 20181205, end: 20181207
  5. RED YEAST RICE [Concomitant]
     Active Substance: DIETARY SUPPLEMENT
  6. VIT D [Concomitant]
     Active Substance: VITAMIN D NOS
  7. OMEPRAZOLE. [Concomitant]
     Active Substance: OMEPRAZOLE
  8. CANASA (SUPPOSITORIES) [Concomitant]
  9. DAILY VITAMIN [Concomitant]
     Active Substance: VITAMINS
  10. SYNTHROID (LEVOTHYROXIN) [Concomitant]
  11. RESTASIS (EYEDROPS) [Concomitant]
  12. COENZYME Q10 [Concomitant]
     Active Substance: UBIDECARENONE

REACTIONS (2)
  - Vitreous floaters [None]
  - Photopsia [None]

NARRATIVE: CASE EVENT DATE: 20181206
